FAERS Safety Report 18335675 (Version 1)
Quarter: 2020Q4

REPORT INFORMATION
  Report Type: Spontaneous
  Country: US (occurrence: US)
  Receive Date: 20201001
  Receipt Date: 20201001
  Transmission Date: 20210113
  Serious: No
  Sender: FDA-Public Use
  Company Number: US-TEVA-2020-US-1833734

PATIENT
  Sex: Female

DRUGS (2)
  1. MUPIROCIN OINTMENT [Concomitant]
     Active Substance: MUPIROCIN
     Indication: FUNGAL INFECTION
     Route: 065
  2. AMOXICILLIN AND CLAVULANATE POTASSIUM [Suspect]
     Active Substance: AMOXICILLIN\CLAVULANATE POTASSIUM
     Dosage: AMOXICILLIN AND CLAVULANATE POTASSIUM TABLETS 875 MG/125 MG
     Route: 065

REACTIONS (7)
  - Somnolence [Unknown]
  - Malaise [Unknown]
  - Fear of death [Unknown]
  - Abnormal faeces [Unknown]
  - Hypoaesthesia [Unknown]
  - Infection [Unknown]
  - Fear of disease [Unknown]
